FAERS Safety Report 6297852-X (Version None)
Quarter: 2009Q3

REPORT INFORMATION
  Report Type: 
  Country: None (occurrence: None)
  Receive Date: 20090804
  Receipt Date: 20090804
  Transmission Date: 20100115
  Serious: Yes (Hospitalization)
  Sender: FDA-Public Use
  Company Number: None

PATIENT
  Age: 17 Year
  Sex: Female
  Weight: 75.2 kg

DRUGS (7)
  1. METHOTREXATE [Suspect]
     Indication: JUVENILE ARTHRITIS
     Dosage: 1.4 ML, WEEKLY, SQ
     Route: 058
     Dates: start: 20090321, end: 20090731
  2. ETANERCEPT/ETANERCEPT PLACEBO 25MG/ML AMGEN CO. [Suspect]
     Dosage: 2.0 ML, WEEKLY, SQ
     Route: 058
     Dates: start: 20090413, end: 20090731
  3. PREDNISOLONE/PREDNISOLONE PLACEBO [Concomitant]
  4. NAPROSYN [Concomitant]
  5. FOLIC ACID [Concomitant]
  6. TUMS [Concomitant]
  7. VICODIN [Concomitant]

REACTIONS (1)
  - INTERSTITIAL LUNG DISEASE [None]
